FAERS Safety Report 6535729-2 (Version None)
Quarter: 2010Q1

REPORT INFORMATION
  Report Type: 
  Country: None (occurrence: None)
  Receive Date: 20100113
  Receipt Date: 20100108
  Transmission Date: 20100710
  Serious: Yes (Other)
  Sender: FDA-Public Use
  Company Number: PHHY2009BR42737

PATIENT
  Sex: Male
  Weight: 115 kg

DRUGS (3)
  1. DIOVAN [Suspect]
     Indication: HYPERTENSION
     Dosage: 1 TABLET (160 MG) IN MORNING AND 1 TABLET AT NIGHT
     Route: 048
  2. METFORMIN HYDROCHLORIDE [Concomitant]
     Indication: DIABETES MELLITUS
  3. ANCORON [Concomitant]
     Indication: CARDIAC DISORDER
     Dosage: UNK

REACTIONS (1)
  - CATHETER PLACEMENT [None]
